FAERS Safety Report 20453677 (Version 1)
Quarter: 2022Q1

REPORT INFORMATION
  Report Type: Report from Study
  Country: US (occurrence: None)
  Receive Date: 20220210
  Receipt Date: 20220210
  Transmission Date: 20220423
  Serious: No
  Sender: FDA-Public Use
  Company Number: US-ALM-HQ-US-2021-1899

PATIENT
  Age: 55 Year
  Sex: Male

DRUGS (2)
  1. KLISYRI [Suspect]
     Active Substance: TIRBANIBULIN
     Indication: Actinic keratosis
     Dosage: WITH CRYOTHERAPY
     Dates: start: 20210721
  2. KLISYRI [Suspect]
     Active Substance: TIRBANIBULIN
     Dates: start: 20210602

REACTIONS (1)
  - Drug intolerance [Unknown]
